FAERS Safety Report 6688890-3 (Version None)
Quarter: 2010Q2

REPORT INFORMATION
  Report Type: 
  Country: None (occurrence: None)
  Receive Date: 20100420
  Receipt Date: 20100408
  Transmission Date: 20101027
  Serious: No
  Sender: FDA-Public Use
  Company Number: US-JNJFOC-20100403088

PATIENT
  Sex: Female

DRUGS (1)
  1. DURAGESIC-100 [Suspect]
     Indication: PAIN
     Dosage: NDC 50458-093-05
     Route: 062

REACTIONS (2)
  - INCORRECT DRUG ADMINISTRATION DURATION [None]
  - PRODUCT QUALITY ISSUE [None]
